FAERS Safety Report 6995886-0 (Version None)
Quarter: 2010Q3

REPORT INFORMATION
  Report Type: 
  Country: None (occurrence: None)
  Receive Date: 20100918
  Receipt Date: 20081108
  Transmission Date: 20110219
  Serious: No
  Sender: FDA-Public Use
  Company Number: US-WYE-H06803908

PATIENT
  Sex: Female

DRUGS (2)
  1. EFFEXOR XR [Suspect]
  2. LEXAPRO [Concomitant]

REACTIONS (7)
  - CHILLS [None]
  - DEPRESSION [None]
  - DIZZINESS [None]
  - DRUG WITHDRAWAL SYNDROME [None]
  - HEADACHE [None]
  - HOT FLUSH [None]
  - VOMITING [None]
